FAERS Safety Report 9017803 (Version 5)
Quarter: 2013Q1

REPORT INFORMATION
  Report Type: Spontaneous
  Country: US (occurrence: US)
  Receive Date: 20130118
  Receipt Date: 20130314
  Transmission Date: 20140127
  Serious: Yes (Hospitalization)
  Sender: FDA-Public Use
  Company Number: US-BIOGENIDEC-2013BI003683

PATIENT
  Age: 57 Year
  Sex: Female

DRUGS (3)
  1. AVONEX [Suspect]
     Indication: MULTIPLE SCLEROSIS
     Route: 030
     Dates: start: 20011231
  2. SOLU MEDROL [Concomitant]
  3. COPAXONE [Concomitant]

REACTIONS (3)
  - Influenza [Recovered/Resolved]
  - Atrial fibrillation [Recovered/Resolved]
  - Hyponatraemia [Unknown]
